FAERS Safety Report 11618299 (Version 1)
Quarter: 2015Q4

REPORT INFORMATION
  Report Type: Spontaneous
  Country: IN (occurrence: IN)
  Receive Date: 20151011
  Receipt Date: 20151011
  Transmission Date: 20160304
  Serious: Yes (Death, Other)
  Sender: FDA-Public Use
  Company Number: PHHY2015IN122992

PATIENT
  Sex: Male

DRUGS (3)
  1. CARBAMAZEPINE. [Suspect]
     Active Substance: CARBAMAZEPINE
     Indication: DYSTONIA
     Route: 065
  2. VALPROATE SODIUM. [Suspect]
     Active Substance: VALPROATE SODIUM
     Indication: DYSTONIA
     Dosage: 500 MG, ONCE/SINGLE
     Route: 065
  3. DIPHENYLHYDANTOIN [Suspect]
     Active Substance: PHENYTOIN
     Indication: DYSTONIA
     Route: 065

REACTIONS (5)
  - Somnolence [Unknown]
  - Drug ineffective [Unknown]
  - Myoglobinuria [Unknown]
  - Acute kidney injury [Unknown]
  - Death [Fatal]
